FAERS Safety Report 21417590 (Version 2)
Quarter: 2025Q4

REPORT INFORMATION
  Report Type: Spontaneous
  Country: US (occurrence: US)
  Receive Date: 20221006
  Receipt Date: 20251006
  Transmission Date: 20260117
  Serious: No
  Sender: RANBAXY
  Company Number: US-SUN PHARMACEUTICAL INDUSTRIES LTD-2022R1-352354

PATIENT
  Sex: Female
  Weight: 81.633 kg

DRUGS (6)
  1. CEQUA [Suspect]
     Active Substance: CYCLOSPORINE
     Indication: Dry eye
     Dosage: UNK UNK, BID FREQUENCY OF TWICE A DAY
     Route: 047
     Dates: start: 20240917
  2. CEQUA [Suspect]
     Active Substance: CYCLOSPORINE
     Dosage: UNK UNK, TID FREQUENCY OF THRICE A DAY
     Route: 047
     Dates: start: 20240917
  3. LEVOTHYROXINE [Concomitant]
     Active Substance: LEVOTHYROXINE
     Indication: Thyroid disorder
     Dosage: UNK
     Route: 065
  4. VALSARTAN [Concomitant]
     Active Substance: VALSARTAN
     Indication: Hypertension
     Route: 065
  5. PANTOPRAZOLE [Concomitant]
     Active Substance: PANTOPRAZOLE
     Indication: Gastrooesophageal reflux disease
     Dosage: UNK
     Route: 065
  6. SYSTANE ULTRA [Concomitant]
     Active Substance: POLYETHYLENE GLYCOL 400\PROPYLENE GLYCOL
     Indication: Product used for unknown indication

REACTIONS (3)
  - Multiple use of single-use product [Unknown]
  - Therapy cessation [Unknown]
  - Inappropriate schedule of product administration [Unknown]
